FAERS Safety Report 18671132 (Version 1)
Quarter: 2020Q4

REPORT INFORMATION
  Report Type: Report from Study
  Country: NO (occurrence: NO)
  Receive Date: 20201228
  Receipt Date: 20201228
  Transmission Date: 20210114
  Serious: Yes (Hospitalization)
  Sender: FDA-Public Use
  Company Number: NO-TAKEDA-NO201841393

PATIENT

DRUGS (12)
  1. TEDUGLUTIDE [Suspect]
     Active Substance: TEDUGLUTIDE
     Indication: SHORT-BOWEL SYNDROME
     Dosage: 0.5 MG (0.5 MG/KG), 7 DOSES PER WEEK
     Route: 065
     Dates: start: 20170208, end: 20170925
  2. TEDUGLUTIDE [Suspect]
     Active Substance: TEDUGLUTIDE
     Dosage: 0.5 MG (0.05 MG/KG), 7 DOSES PER WEEK
     Route: 065
     Dates: start: 20180106
  3. TEDUGLUTIDE [Suspect]
     Active Substance: TEDUGLUTIDE
     Dosage: 0.5 MG (0.05 MG/KG), 7 DOSES PER WEEK
     Route: 065
     Dates: start: 20180106
  4. AMOKSICILLIN [Concomitant]
     Indication: OVERGROWTH BACTERIAL
  5. TEDUGLUTIDE [Suspect]
     Active Substance: TEDUGLUTIDE
     Indication: SHORT-BOWEL SYNDROME
     Dosage: 0.5 MG (0.5 MG/KG), 7 DOSES PER WEEK
     Route: 065
     Dates: start: 20170208, end: 20170925
  6. RANITIDINE. [Concomitant]
     Active Substance: RANITIDINE
     Indication: SECRETION DISCHARGE
  7. TEDUGLUTIDE [Suspect]
     Active Substance: TEDUGLUTIDE
     Indication: SHORT-BOWEL SYNDROME
     Dosage: 0.5 MG (0.5 MG/KG), 7 DOSES PER WEEK
     Route: 065
     Dates: start: 20170208, end: 20170925
  8. TEDUGLUTIDE [Suspect]
     Active Substance: TEDUGLUTIDE
     Dosage: 0.5 MG (0.05 MG/KG), 7 DOSES PER WEEK
     Route: 065
     Dates: start: 20180106
  9. TEDUGLUTIDE [Suspect]
     Active Substance: TEDUGLUTIDE
     Indication: SHORT-BOWEL SYNDROME
     Dosage: 0.5 MG (0.5 MG/KG), 7 DOSES PER WEEK
     Route: 065
     Dates: start: 20170208, end: 20170925
  10. TEDUGLUTIDE [Suspect]
     Active Substance: TEDUGLUTIDE
     Dosage: 0.5 MG (0.05 MG/KG), 7 DOSES PER WEEK
     Route: 065
     Dates: start: 20180106
  11. URSODIOL. [Concomitant]
     Active Substance: URSODIOL
     Indication: HEPATIC FAILURE
  12. LOPERAMID [Concomitant]
     Active Substance: LOPERAMIDE
     Indication: DIARRHOEA

REACTIONS (2)
  - Vascular device infection [Recovered/Resolved]
  - Excessive granulation tissue [Recovered/Resolved]

NARRATIVE: CASE EVENT DATE: 20180518
